FAERS Safety Report 19945344 (Version 3)
Quarter: 2025Q3

REPORT INFORMATION
  Report Type: Report from Study
  Country: GB (occurrence: GB)
  Receive Date: 20211012
  Receipt Date: 20250805
  Transmission Date: 20251021
  Serious: Yes (Other)
  Sender: ABBVIE
  Company Number: GB-ABBVIE-18P-167-2484641-00

PATIENT
  Age: 12 Year
  Sex: Female

DRUGS (15)
  1. HUMIRA [Suspect]
     Active Substance: ADALIMUMAB
     Indication: Crohn^s disease
     Route: 058
     Dates: start: 20160210, end: 20180810
  2. AZATHIOPRINE [Suspect]
     Active Substance: AZATHIOPRINE
     Indication: Crohn^s disease
     Route: 048
     Dates: start: 20131116, end: 20161115
  3. AZATHIOPRINE [Suspect]
     Active Substance: AZATHIOPRINE
     Indication: Crohn^s disease
     Route: 048
     Dates: start: 20161116, end: 20200909
  4. PENTASA [Concomitant]
     Active Substance: MESALAMINE
     Indication: Crohn^s disease
     Route: 048
     Dates: start: 20110427
  5. SYTRON [Concomitant]
     Indication: Iron deficiency
     Route: 048
     Dates: start: 20110909
  6. FLUCLOXACILLIN [Concomitant]
     Active Substance: FLUCLOXACILLIN
     Indication: Cheilitis granulomatosa
     Route: 048
     Dates: start: 20161117, end: 201612
  7. FLUCLOXACILLIN [Concomitant]
     Active Substance: FLUCLOXACILLIN
     Indication: Cheilitis granulomatosa
     Route: 048
     Dates: start: 20170403, end: 20170416
  8. FLUCLOXACILLIN [Concomitant]
     Active Substance: FLUCLOXACILLIN
     Indication: Cheilitis granulomatosa
     Route: 048
     Dates: start: 20171128, end: 201712
  9. FLUCLOXACILLIN [Concomitant]
     Active Substance: FLUCLOXACILLIN
     Indication: Cheilitis granulomatosa
     Route: 042
     Dates: start: 20180329, end: 20180402
  10. CHLOROCRESOL [Concomitant]
     Active Substance: CHLOROCRESOL
     Indication: Eczema
     Route: 061
     Dates: start: 20170403
  11. CARBOHYDRATES\FATTY ACIDS\MINERALS\PROTEIN\VITAMINS [Concomitant]
     Active Substance: CARBOHYDRATES\FATTY ACIDS\MINERALS\PROTEIN\VITAMINS
     Indication: Nutritional supplementation
     Route: 048
     Dates: start: 201706
  12. BETNESOL [Concomitant]
     Indication: Cheilitis granulomatosa
     Dosage: MOUTHWASH
     Dates: start: 20171128
  13. HYDROUS [Concomitant]
     Indication: Crohn^s disease
     Route: 061
     Dates: start: 201712
  14. ZERO AQUEOUS CREAM [Concomitant]
     Indication: Crohn^s disease
     Route: 061
     Dates: start: 201709
  15. ACIFEROL d3 [Concomitant]
     Indication: Vitamin supplementation
     Route: 048
     Dates: start: 201711

REACTIONS (1)
  - Rectal stenosis [Not Recovered/Not Resolved]

NARRATIVE: CASE EVENT DATE: 20180605
